FAERS Safety Report 6244829-6 (Version None)
Quarter: 2009Q2

REPORT INFORMATION
  Report Type: 
  Country: None (occurrence: None)
  Receive Date: 20090625
  Receipt Date: 20090622
  Transmission Date: 20091009
  Serious: Yes (Hospitalization, Other)
  Sender: FDA-Public Use
  Company Number: AT-WYE-H09849609

PATIENT
  Sex: Male

DRUGS (17)
  1. SIROLIMUS [Suspect]
     Indication: PROPHYLAXIS AGAINST TRANSPLANT REJECTION
     Route: 048
     Dates: start: 20031011, end: 20031016
  2. SIROLIMUS [Suspect]
     Route: 048
     Dates: start: 20031019, end: 20040511
  3. SIROLIMUS [Suspect]
     Route: 048
     Dates: start: 20040513
  4. DACLIZUMAB [Suspect]
     Indication: PROPHYLAXIS AGAINST TRANSPLANT REJECTION
     Dosage: 150 MG ONCE
     Route: 042
     Dates: start: 20031011, end: 20031011
  5. DACLIZUMAB [Suspect]
     Route: 042
     Dates: start: 20031025, end: 20031209
  6. PREDNISOLONE [Suspect]
     Indication: PROPHYLAXIS AGAINST TRANSPLANT REJECTION
     Route: 048
     Dates: start: 20031013
  7. METHYLPREDNISOLONE [Suspect]
     Indication: PROPHYLAXIS AGAINST TRANSPLANT REJECTION
     Dosage: 500 MG AND 250 MG
     Route: 042
     Dates: start: 20031011, end: 20031011
  8. METHYLPREDNISOLONE [Suspect]
     Dosage: 125 MG ONCE
     Route: 042
     Dates: start: 20031012, end: 20031012
  9. METHYLPREDNISOLONE [Suspect]
     Route: 048
     Dates: start: 20031019
  10. SULFAMETHOXAZOLE AND TRIMETHOPRIM [Concomitant]
     Dosage: UNKNOWN
     Route: 065
     Dates: start: 20031013, end: 20040705
  11. DILATREND [Concomitant]
     Dosage: UNKNOWN
     Route: 065
     Dates: start: 20031011
  12. NORVASC [Concomitant]
     Dosage: UNKNOWN
     Route: 065
     Dates: start: 20031011
  13. ASPIRIN [Concomitant]
     Dosage: UNKNOWN
     Route: 065
     Dates: start: 20031001
  14. NOVOMIX [Concomitant]
     Dosage: UNKNOWN
     Route: 065
     Dates: start: 20031101
  15. LABETALOL HYDROCHLORIDE [Concomitant]
     Dosage: UNKNOWN
     Route: 065
     Dates: start: 20031012
  16. MYCOPHENOLATE MOFETIL [Suspect]
     Indication: PROPHYLAXIS AGAINST TRANSPLANT REJECTION
     Dosage: VARIABLE DOSES
     Route: 048
     Dates: start: 20031011
  17. PANTOPRAZOLE SODIUM [Concomitant]
     Dosage: UNKNOWN
     Route: 065
     Dates: start: 20031001

REACTIONS (3)
  - CONDITION AGGRAVATED [None]
  - DIABETES MELLITUS [None]
  - RENAL CELL CARCINOMA [None]
